FAERS Safety Report 12450643 (Version 2)
Quarter: 2016Q2

REPORT INFORMATION
  Report Type: Spontaneous
  Country: IT (occurrence: IT)
  Receive Date: 20160609
  Receipt Date: 20160610
  Transmission Date: 20160815
  Serious: Yes (Other)
  Sender: FDA-Public Use
  Company Number: IT-ROCHE-1770564

PATIENT
  Age: 40 Year
  Sex: Female

DRUGS (4)
  1. RIVOTRIL [Suspect]
     Active Substance: CLONAZEPAM
     Indication: FIBROMYALGIA
     Dosage: 2.5 MG/ML ORAL DROPS, SOLUTION
     Route: 048
     Dates: start: 20160417
  2. RIVOTRIL [Suspect]
     Active Substance: CLONAZEPAM
     Route: 048
     Dates: end: 20160418
  3. LEXOTAN [Suspect]
     Active Substance: BROMAZEPAM
     Route: 048
     Dates: end: 20160418
  4. LEXOTAN [Suspect]
     Active Substance: BROMAZEPAM
     Indication: FIBROMYALGIA
     Route: 048
     Dates: start: 20160417

REACTIONS (3)
  - Sopor [Recovered/Resolved]
  - Overdose [Unknown]
  - Drug abuse [Unknown]

NARRATIVE: CASE EVENT DATE: 20160417
